FAERS Safety Report 6091769-1 (Version None)
Quarter: 2009Q1

REPORT INFORMATION
  Report Type: 
  Country: None (occurrence: None)
  Receive Date: 20090225
  Receipt Date: 20080530
  Transmission Date: 20090719
  Serious: No
  Sender: FDA-Public Use
  Company Number: A0730343A

PATIENT
  Age: 76 Year
  Sex: Female

DRUGS (13)
  1. VALTREX [Suspect]
     Indication: GENITAL HERPES
     Dosage: 500MG PER DAY
     Route: 048
     Dates: start: 20070101, end: 20070101
  2. ZIAC [Concomitant]
  3. EVOXAC [Concomitant]
  4. CITRACAL [Concomitant]
  5. KLOR-CON [Concomitant]
  6. ACTONEL [Concomitant]
  7. FOLIC ACID [Concomitant]
  8. XANAX [Concomitant]
  9. GABAPENTIN [Concomitant]
  10. DETROL LA [Concomitant]
  11. CENTRUM [Concomitant]
  12. OSCAL [Concomitant]
  13. ACETAMINOPHEN [Concomitant]

REACTIONS (1)
  - DIARRHOEA [None]
